FAERS Safety Report 7350570-9 (Version None)
Quarter: 2011Q1

REPORT INFORMATION
  Report Type: 
  Country: None (occurrence: None)
  Receive Date: 20110314
  Receipt Date: 20110304
  Transmission Date: 20110831
  Serious: Yes (Death, Hospitalization)
  Sender: FDA-Public Use
  Company Number: SK-CELGENEUS-260-50794-11030504

PATIENT
  Age: 75 Year
  Sex: Male

DRUGS (1)
  1. VIDAZA [Suspect]
     Indication: MYELODYSPLASTIC SYNDROME
     Route: 050

REACTIONS (3)
  - MYELODYSPLASTIC SYNDROME [None]
  - HAEMORRHAGE [None]
  - SEPTIC SHOCK [None]
